FAERS Safety Report 19453819 (Version 1)
Quarter: 2021Q2

REPORT INFORMATION
  Report Type: Spontaneous
  Country: US (occurrence: US)
  Receive Date: 20210623
  Receipt Date: 20210623
  Transmission Date: 20210717
  Serious: No
  Sender: FDA-Public Use
  Company Number: US-BAYER-2021-162714

PATIENT
  Age: 43 Year
  Sex: Female

DRUGS (2)
  1. HIGH BLOOD PRESSURURE [Concomitant]
  2. CLIMARA [Suspect]
     Active Substance: ESTRADIOL
     Dosage: UNK UNK, OW
     Route: 062
     Dates: start: 202101

REACTIONS (4)
  - Device material issue [None]
  - Device adhesion issue [None]
  - Product physical issue [None]
  - Incorrect dose administered by device [None]

NARRATIVE: CASE EVENT DATE: 2021
